FAERS Safety Report 9713019 (Version 1)
Quarter: 2013Q4

REPORT INFORMATION
  Report Type: Report from Study
  Country: CN (occurrence: CN)
  Receive Date: 20131126
  Receipt Date: 20131126
  Transmission Date: 20140711
  Serious: Yes (Other)
  Sender: FDA-Public Use
  Company Number: CN-SA-2013SA120315

PATIENT
  Age: 33 Year
  Sex: 0

DRUGS (2)
  1. PRIMAQUINE PHOSPHATE [Suspect]
     Indication: PLASMODIUM VIVAX INFECTION
     Dosage: ONCE A DAY FOR EIGHT DAYS
     Route: 065
  2. CHLOROQUINE PHOSPHATE [Suspect]
     Indication: PLASMODIUM VIVAX INFECTION
     Dosage: DOSE: 24 MG BASE/KG?ONCE A DAY FOR THREE DAYS
     Route: 065

REACTIONS (3)
  - Haemoglobinuria [Recovered/Resolved]
  - Discomfort [Recovered/Resolved]
  - Chromaturia [Recovered/Resolved]
